FAERS Safety Report 13828651 (Version 1)
Quarter: 2017Q3

REPORT INFORMATION
  Report Type: Spontaneous
  Country: US (occurrence: US)
  Receive Date: 20170802
  Receipt Date: 20170802
  Transmission Date: 20171127
  Serious: Yes (Other)
  Sender: FDA-Public Use
  Company Number: None

PATIENT
  Age: 55 Year
  Sex: Male
  Weight: 74 kg

DRUGS (1)
  1. PACLITAXEL. [Suspect]
     Active Substance: PACLITAXEL
     Dosage: ?          OTHER FREQUENCY:EVERY 3 WEEKS;?

REACTIONS (3)
  - Loss of consciousness [None]
  - Infusion related reaction [None]
  - Respiratory arrest [None]

NARRATIVE: CASE EVENT DATE: 20170725
